FAERS Safety Report 9007472 (Version 1)
Quarter: 2013Q1

REPORT INFORMATION
  Report Type: Spontaneous
  Country: US (occurrence: US)
  Receive Date: 20130111
  Receipt Date: 20130111
  Transmission Date: 20140127
  Serious: Yes (Death)
  Sender: FDA-Public Use
  Company Number: US-AMGEN-USASP2013001613

PATIENT
  Age: 62 Year
  Sex: Male

DRUGS (4)
  1. ENBREL [Suspect]
     Indication: PRODUCT USED FOR UNKNOWN INDICATION
     Dosage: 50 MG, QWK
  2. MEDROL                             /00049601/ [Concomitant]
     Dosage: 4 MG, UNK
  3. VOLTAREN                           /00372301/ [Concomitant]
     Dosage: 25 MG, UNK
  4. FOLIC ACID [Concomitant]
     Dosage: 1 MG, UNK

REACTIONS (1)
  - Death [Fatal]
